FAERS Safety Report 26183245 (Version 3)
Quarter: 2025Q4

REPORT INFORMATION
  Report Type: Spontaneous
  Country: US (occurrence: US)
  Receive Date: 20251221
  Receipt Date: 20251223
  Transmission Date: 20260118
  Serious: Yes (Hospitalization, Other)
  Sender: SANDOZ
  Company Number: US-SANDOZ-SDZ2025US095489

PATIENT

DRUGS (29)
  1. ZOFRAN [Suspect]
     Active Substance: ONDANSETRON HYDROCHLORIDE
     Indication: Nausea
     Dosage: 4 MG TAB, ORAL, EVERY 8 HOURS AS NEEDED
     Dates: start: 20251021
  2. ZITHROMAX [Suspect]
     Active Substance: AZITHROMYCIN DIHYDRATE
     Indication: Atypical mycobacterial infection
     Dosage: 250 MG, QD
     Dates: start: 20250612
  3. ZITHROMAX [Suspect]
     Active Substance: AZITHROMYCIN DIHYDRATE
     Dosage: 500 MG, QD
     Dates: start: 20250703
  4. ZITHROMAX [Suspect]
     Active Substance: AZITHROMYCIN DIHYDRATE
     Dosage: 500 MG, QD
     Dates: start: 20241002
  5. ZOVIRAX [Concomitant]
     Active Substance: ACYCLOVIR
     Indication: Herpes zoster
     Dosage: APPLY AS NEEDED EVERY 3 HOURS 5 %
     Dates: start: 20250609
  6. ALBUTEROL SULFATE [Concomitant]
     Active Substance: ALBUTEROL SULFATE
     Indication: Chronic obstructive pulmonary disease
     Dosage: 2.5 MG, Q6H  (2.5 MG/3ML)
     Dates: start: 20250609
  7. GAVISCON EXTRA STRENGTH [Concomitant]
     Active Substance: ALUMINUM HYDROXIDE\MAGNESIUM CARBONATE
     Indication: Dyspepsia
     Dosage: 508- 475 MG/10ML TAKE BY MOUTH AS NEEDED
     Dates: start: 20240910
  8. SYMBICORT [Concomitant]
     Active Substance: BUDESONIDE\FORMOTEROL FUMARATE DIHYDRATE
     Indication: Chronic obstructive pulmonary disease
     Dosage: INHALE 2 PUFFS 2 TIMES 160-4.5 MCG/ACT
     Dates: start: 20250619
  9. TUMS [Concomitant]
     Active Substance: CALCIUM CARBONATE
     Indication: Gastrooesophageal reflux disease
     Dosage: TAKE 2 TABS BY MOUTH ONE TIME DAILY
     Dates: start: 20250609
  10. VITAMIN D3 [Concomitant]
     Active Substance: CHOLECALCIFEROL
     Indication: Osteoporosis
     Dosage: TAKE 2 TABS ORALLY, DAILY IN MORNING
     Dates: start: 20241030
  11. DICLOFENAC SODIUM [Concomitant]
     Active Substance: DICLOFENAC SODIUM
     Indication: Product used for unknown indication
     Dosage: APPLY 2 G ONE TIME DAILY AS NEEDED - TOPICAL
     Route: 061
     Dates: start: 20250826
  12. MYAMBUTOL [Concomitant]
     Active Substance: ETHAMBUTOL HYDROCHLORIDE
     Indication: Atypical mycobacterial infection
     Dosage: 400 MG, QD
     Dates: start: 20241002
  13. PEPCID [Concomitant]
     Active Substance: FAMOTIDINE
     Indication: Gastrooesophageal reflux disease
     Dosage: TAKE 1 TAB BY MOUTH ONE TIME DAILY AT BEDTIME
     Dates: start: 20250621
  14. FLONASE [Concomitant]
     Active Substance: FLUTICASONE PROPIONATE
     Indication: Rhinitis allergic
     Dosage: 50 MCG/ACT
     Dates: start: 20240411
  15. DUONEB [Concomitant]
     Active Substance: ALBUTEROL SULFATE\IPRATROPIUM BROMIDE
     Indication: Dyspnoea
     Dosage: 3 ML, Q6H TAKE 3 ML BY NEBULIZER EVERY 6 HOURS AS NEEDED
     Dates: start: 20240530
  16. CLARITIN [Concomitant]
     Active Substance: LORATADINE
     Indication: Hypersensitivity
     Dosage: 10 MG, QD
     Dates: start: 20250826
  17. MAGNESIUM [Concomitant]
     Active Substance: MAGNESIUM
     Indication: Product used for unknown indication
     Dosage: 400 MG, QD
     Dates: start: 20250826
  18. SINGULAIR [Concomitant]
     Active Substance: MONTELUKAST SODIUM
     Indication: Chronic obstructive pulmonary disease
     Dosage: 10 MG, QD
     Dates: start: 20230828
  19. MIRALAX [Concomitant]
     Active Substance: POLYETHYLENE GLYCOL 3350
     Indication: Constipation
     Dosage: TAKE 1 PACKET BY MOUTH ONE TIME DAILY AS NEEDED
     Dates: start: 20240816
  20. ACIPHEX [Concomitant]
     Active Substance: RABEPRAZOLE SODIUM
     Indication: Gastrooesophageal reflux disease
     Dosage: 20 MG DELAYED RELEASE TAB, ORAL, DAILY IN MORNING
     Dates: start: 20240623
  21. SODIUM CHLORIDE [Concomitant]
     Active Substance: SODIUM CHLORIDE
     Indication: Chronic obstructive pulmonary disease
     Dosage: TAKE 4 ML BY NEBULIZER 3 TIMES DAILY AS NEEDED
     Dates: start: 20251104
  22. SPIRIVA [Concomitant]
     Active Substance: TIOTROPIUM BROMIDE MONOHYDRATE
     Indication: Chronic obstructive pulmonary disease
     Dosage: 18 MCG INHALANT CAP; INHALE 2 PUFFS FROM CONTENTS OF 1 CAPSULE BY MOUTH ONCE DAILY
     Dates: start: 20230828
  23. ZENPEP [Concomitant]
     Active Substance: PANCRELIPASE AMYLASE\PANCRELIPASE LIPASE\PANCRELIPASE PROTEASE
     Indication: Pancreatitis
     Dosage: 10000-32000  1 CAP BY MOUTH 3 TIMES DAILY AT MEALTIME
     Dates: start: 20250621
  24. ZOLEDRONIC ACID [Concomitant]
     Active Substance: ZOLEDRONIC ACID
     Indication: Osteoporosis
     Dosage: UNK
  25. SENOKOT-S [Concomitant]
     Active Substance: DOCUSATE SODIUM\SENNOSIDES
     Indication: Constipation
     Dosage: 50 MG, QD
     Dates: start: 20251119
  26. LASIX [Concomitant]
     Active Substance: FUROSEMIDE
     Indication: Oedema
     Dosage: TAKE 1 TAB BY MOUTH ONE TIME DAILY. MAY ALSO TAKE 1 TAB ONE TIME DAILY AS NEEDED (TAKE ADDITIONAL 20 MG IF WEIGHT } 3 POUNDS IN 1 DAY.)
     Dates: start: 20250827
  27. BUMETANIDE [Concomitant]
     Active Substance: BUMETANIDE
     Indication: Oedema
     Dosage: 1 MG, QD
     Dates: start: 20250625
  28. HYDROXYZINE HYDROCHLORIDE [Concomitant]
     Active Substance: HYDROXYZINE HYDROCHLORIDE
     Indication: Anxiety
     Dosage: 25 MG
  29. ZOLOFT [Concomitant]
     Active Substance: SERTRALINE HYDROCHLORIDE
     Indication: Anxiety
     Dosage: 50 MG

REACTIONS (28)
  - Pancreatitis [Recovered/Resolved]
  - Kidney infection [Recovered/Resolved]
  - Pancreatitis acute [Recovered/Resolved]
  - Influenza [Recovered/Resolved]
  - Chronic obstructive pulmonary disease [Recovered/Resolved]
  - Chronic obstructive pulmonary disease [Recovered/Resolved]
  - Constipation [Recovered/Resolved]
  - Constipation [Recovered/Resolved]
  - Oesophageal stenosis [Recovered/Resolved]
  - Diaphragmatic hernia [Not Recovered/Not Resolved]
  - Peripancreatic inflammation [Recovered/Resolved]
  - Tinnitus [Recovering/Resolving]
  - Ear pain [Recovered/Resolved]
  - Chest discomfort [Recovered/Resolved]
  - Dyspnoea [Recovered/Resolved]
  - Hyperhidrosis [Recovered/Resolved]
  - Dysphagia [Recovered/Resolved]
  - Gastroenteritis [Recovered/Resolved]
  - Rib fracture [Recovered/Resolved]
  - Chronic obstructive pulmonary disease [Recovered/Resolved]
  - Herpes zoster [Recovered/Resolved]
  - Candida infection [Recovered/Resolved]
  - Otitis media acute [Recovered/Resolved]
  - Post herpetic neuralgia [Recovered/Resolved]
  - Chronic obstructive pulmonary disease [Recovered/Resolved]
  - Chronic obstructive pulmonary disease [Recovered/Resolved]
  - Abdominal pain [Recovered/Resolved]
  - Constipation [Recovered/Resolved]
